FAERS Safety Report 8432630-4 (Version None)
Quarter: 2012Q2

REPORT INFORMATION
  Report Type: 
  Country: None (occurrence: None)
  Receive Date: 20120613
  Receipt Date: 20120605
  Transmission Date: 20120825
  Serious: Yes (Hospitalization)
  Sender: FDA-Public Use
  Company Number: US-BAYER-2011-074705

PATIENT
  Age: 40 Year
  Sex: Female
  Weight: 95.238 kg

DRUGS (9)
  1. OVCON-35 [Concomitant]
  2. ZANTAC [Concomitant]
     Dosage: UNK
     Dates: start: 20080128
  3. YAZ [Suspect]
     Dosage: UNK
     Dates: start: 20080101, end: 20080301
  4. IBUPROFEN [Concomitant]
     Indication: ABDOMINAL PAIN LOWER
     Dosage: 800 MG, EVERY SIX HOURS
  5. CYTOMEL [Concomitant]
  6. LEXAPRO [Concomitant]
     Dosage: 20 MG, UNK
     Dates: start: 20080128
  7. ACIPHEX [Concomitant]
  8. SYNTHROID [Concomitant]
  9. TOPAMAX [Concomitant]

REACTIONS (3)
  - INJURY [None]
  - DEEP VEIN THROMBOSIS [None]
  - PAIN [None]
